FAERS Safety Report 4954161-6 (Version None)
Quarter: 2006Q1

REPORT INFORMATION
  Report Type: 
  Country: None (occurrence: None)
  Receive Date: 20060321
  Receipt Date: 20060309
  Transmission Date: 20060701
  Serious: Yes (Hospitalization, Disabling, Other)
  Sender: FDA-Public Use
  Company Number: 13713

PATIENT
  Age: 55 Year
  Sex: Male

DRUGS (2)
  1. FLUOROURACIL [Suspect]
     Indication: COLON CANCER
     Dosage: 500 MG DAILY IV
     Route: 042
  2. LEUCOVORIN [Suspect]
     Indication: COLON CANCER
     Dosage: 50 MG DAILY IV
     Route: 042

REACTIONS (5)
  - COLON CANCER RECURRENT [None]
  - DYSURIA [None]
  - HYPERREFLEXIA [None]
  - MYELITIS [None]
  - URINARY RETENTION [None]
